FAERS Safety Report 11204476 (Version 1)
Quarter: 2015Q2

REPORT INFORMATION
  Report Type: Spontaneous
  Country: US (occurrence: US)
  Receive Date: 20150621
  Receipt Date: 20150621
  Transmission Date: 20150821
  Serious: No
  Sender: FDA-Public Use
  Company Number: US-ASTRAZENECA-2015SE57439

PATIENT
  Age: 62 Year
  Sex: Female

DRUGS (6)
  1. ASTHMA MEDICATION [Concomitant]
     Active Substance: UNSPECIFIED INGREDIENT
  2. BLOOD PRESSURE MEDICATION [Concomitant]
     Active Substance: UNSPECIFIED INGREDIENT
  3. FASLODEX [Suspect]
     Active Substance: FULVESTRANT
     Indication: BREAST CANCER METASTATIC
     Route: 030
     Dates: start: 20150605
  4. BENADRYL [Concomitant]
     Active Substance: DIPHENHYDRAMINE HYDROCHLORIDE
  5. INSULIN [Concomitant]
     Active Substance: INSULIN NOS
  6. MEDROL PAK [Concomitant]

REACTIONS (6)
  - Diabetes mellitus [Unknown]
  - Arthritis [Unknown]
  - Swelling face [Unknown]
  - Multimorbidity [Unknown]
  - Peripheral swelling [Unknown]
  - Angioedema [Unknown]

NARRATIVE: CASE EVENT DATE: 201506
